FAERS Safety Report 16920435 (Version 1)
Quarter: 2019Q4

REPORT INFORMATION
  Report Type: Spontaneous
  Country: DK (occurrence: DK)
  Receive Date: 20191015
  Receipt Date: 20191015
  Transmission Date: 20200122
  Serious: Yes (Hospitalization, Other)
  Sender: FDA-Public Use
  Company Number: DK-VISTAPHARM, INC.-VER201910-001079

PATIENT
  Age: 24 Year
  Sex: Female

DRUGS (6)
  1. ALBUTEROL. [Suspect]
     Active Substance: ALBUTEROL
     Indication: ASTHMA
     Dosage: UNKNOWN
  2. METHYLPREDNISOLONE. [Concomitant]
     Active Substance: METHYLPREDNISOLONE
     Indication: ASTHMA
     Dosage: 10 X 2.5 MG
     Route: 042
  3. BENZYL PENICILLIN [Concomitant]
     Indication: ASTHMA
     Dosage: 10 X 2.5 MG
     Route: 042
  4. MAGNESIUM SULFATE. [Concomitant]
     Active Substance: MAGNESIUM SULFATE
     Indication: PRODUCT USED FOR UNKNOWN INDICATION
     Dosage: 2 G
     Route: 042
  5. TERBUTALINE [Concomitant]
     Active Substance: TERBUTALINE
     Indication: ASTHMA
     Dosage: 0.5 MG
     Route: 042
  6. TERBUTALINE [Concomitant]
     Active Substance: TERBUTALINE
     Dosage: AT THE RATE OF 5-25 MICROGRAMS/MIN
     Route: 042

REACTIONS (1)
  - Lactic acidosis [Recovered/Resolved]
